FAERS Safety Report 25713477 (Version 1)
Quarter: 2025Q3

REPORT INFORMATION
  Report Type: Spontaneous
  Country: US (occurrence: US)
  Receive Date: 20250822
  Receipt Date: 20250822
  Transmission Date: 20251020
  Serious: Yes (Hospitalization, Disabling, Other)
  Sender: AUROBINDO
  Company Number: US-MLMSERVICE-20250805-PI601321-00136-1

PATIENT
  Age: 79 Year
  Sex: Male

DRUGS (3)
  1. ESCITALOPRAM [Interacting]
     Active Substance: ESCITALOPRAM OXALATE
     Indication: Product used for unknown indication
     Route: 065
  2. BUPROPION\DEXTROMETHORPHAN [Interacting]
     Active Substance: BUPROPION\DEXTROMETHORPHAN
     Indication: Major depression
     Route: 065
  3. CARVEDILOL [Concomitant]
     Active Substance: CARVEDILOL
     Indication: Product used for unknown indication
     Dosage: 6.25 MILLIGRAM, TWO TIMES A DAY
     Route: 065

REACTIONS (3)
  - Serotonin syndrome [Recovered/Resolved]
  - Toxic encephalopathy [Recovered/Resolved]
  - Drug interaction [Recovered/Resolved]
